FAERS Safety Report 16353274 (Version 1)
Quarter: 2019Q2

REPORT INFORMATION
  Report Type: Spontaneous
  Country: US (occurrence: US)
  Receive Date: 20190418
  Receipt Date: 20190418
  Transmission Date: 20190711
  Serious: Yes (Hospitalization)
  Sender: FDA-Public Use
  Company Number: None

PATIENT
  Age: 65 Year
  Sex: Female

DRUGS (14)
  1. PROLIA [Concomitant]
     Active Substance: DENOSUMAB
  2. KLOR-CON [Concomitant]
     Active Substance: POTASSIUM CHLORIDE
  3. OMEPRAZOLE. [Concomitant]
     Active Substance: OMEPRAZOLE
  4. PREDNISONE. [Concomitant]
     Active Substance: PREDNISONE
  5. RANITIDINE. [Concomitant]
     Active Substance: RANITIDINE
  6. TORSEMIDE. [Concomitant]
     Active Substance: TORSEMIDE
  7. ESBRIET [Suspect]
     Active Substance: PIRFENIDONE
     Indication: IDIOPATHIC PULMONARY FIBROSIS
     Route: 048
     Dates: start: 20161115
  8. ANASTROZOLE. [Concomitant]
     Active Substance: ANASTROZOLE
  9. ALBUTEROL. [Concomitant]
     Active Substance: ALBUTEROL
  10. FOLIC ACID. [Concomitant]
     Active Substance: FOLIC ACID
  11. ORPHENADRINE [Concomitant]
     Active Substance: ORPHENADRINE
  12. SIMVASTATIN. [Concomitant]
     Active Substance: SIMVASTATIN
  13. ALLOPURINOL. [Concomitant]
     Active Substance: ALLOPURINOL
  14. DILTIAZEM. [Concomitant]
     Active Substance: DILTIAZEM

REACTIONS (2)
  - Product dose omission [None]
  - Bronchitis [None]

NARRATIVE: CASE EVENT DATE: 20190411
